FAERS Safety Report 14012322 (Version 2)
Quarter: 2017Q4

REPORT INFORMATION
  Report Type: Report from Study
  Country: None (occurrence: CA)
  Receive Date: 20170926
  Receipt Date: 20171031
  Transmission Date: 20180321
  Serious: Yes (Hospitalization, Other)
  Sender: FDA-Public Use
  Company Number: CA-ABBVIE-17K-028-2108357-00

PATIENT
  Age: 74 Year
  Sex: Female
  Weight: 52 kg

DRUGS (1)
  1. HUMIRA [Suspect]
     Active Substance: ADALIMUMAB
     Indication: CROHN^S DISEASE
     Route: 058
     Dates: start: 20160205

REACTIONS (5)
  - Gastrointestinal disorder [Unknown]
  - Skin ulcer [Not Recovered/Not Resolved]
  - Intestinal obstruction [Recovered/Resolved]
  - Respiratory tract infection viral [Unknown]
  - Nausea [Unknown]

NARRATIVE: CASE EVENT DATE: 20170912
